FAERS Safety Report 5645451-2 (Version None)
Quarter: 2008Q1

REPORT INFORMATION
  Report Type: 
  Country: None (occurrence: None)
  Receive Date: 20080229
  Receipt Date: 20070511
  Transmission Date: 20080703
  Serious: No
  Sender: FDA-Public Use
  Company Number: US-BRISTOL-MYERS SQUIBB COMPANY-13776935

PATIENT
  Sex: Male

DRUGS (3)
  1. TAXOL [Suspect]
  2. DECADRON [Suspect]
  3. TAXOTERE [Suspect]

REACTIONS (1)
  - DIABETES MELLITUS [None]
